FAERS Safety Report 17297957 (Version 1)
Quarter: 2020Q1

REPORT INFORMATION
  Report Type: Spontaneous
  Country: US (occurrence: US)
  Receive Date: 20200102
  Receipt Date: 20200102
  Transmission Date: 20200409
  Serious: No
  Sender: FDA-Public Use
  Company Number: None

PATIENT
  Age: 49 Year
  Sex: Male

DRUGS (1)
  1. OPSUMIT [Suspect]
     Active Substance: MACITENTAN
     Indication: PULMONARY ARTERIAL HYPERTENSION
     Route: 048
     Dates: start: 20191127, end: 20191130

REACTIONS (5)
  - Discomfort [None]
  - Pruritus [None]
  - Drug eruption [None]
  - Urticaria [None]
  - Scratch [None]

NARRATIVE: CASE EVENT DATE: 20191130
